FAERS Safety Report 9614301 (Version 1)
Quarter: 2013Q4

REPORT INFORMATION
  Report Type: Spontaneous
  Country: US (occurrence: None)
  Receive Date: 20131008
  Receipt Date: 20131008
  Transmission Date: 20140711
  Serious: Yes (Life-Threatening, Hospitalization)
  Sender: FDA-Public Use
  Company Number: None

PATIENT
  Age: 70 Year
  Sex: Female
  Weight: 50.9 kg

DRUGS (1)
  1. BENICAR [Suspect]
     Indication: HYPERTENSION
     Dosage: BENICAR DAILY
     Dates: start: 2010, end: 2013

REACTIONS (8)
  - Diarrhoea [None]
  - No therapeutic response [None]
  - Hypotension [None]
  - Hypovolaemia [None]
  - Syncope [None]
  - Anaemia [None]
  - Pancreatitis acute [None]
  - Hyponatraemia [None]
